FAERS Safety Report 6448104-6 (Version None)
Quarter: 2009Q4

REPORT INFORMATION
  Report Type: 
  Country: None (occurrence: None)
  Receive Date: 20091120
  Receipt Date: 20091020
  Transmission Date: 20100525
  Serious: No
  Sender: FDA-Public Use
  Company Number: US-BAYER-200937190NA

PATIENT
  Age: 24 Year
  Sex: Female
  Weight: 77 kg

DRUGS (2)
  1. MIRENA [Suspect]
     Indication: CONTRACEPTION
     Dosage: CONTINUOUS
     Route: 015
     Dates: start: 20091007
  2. BONTRIL [Concomitant]
     Dates: start: 20091020

REACTIONS (1)
  - VAGINAL HAEMORRHAGE [None]
